FAERS Safety Report 4646789-8 (Version None)
Quarter: 2005Q2

REPORT INFORMATION
  Report Type: 
  Country: None (occurrence: None)
  Receive Date: 20050427
  Receipt Date: 20050425
  Transmission Date: 20051028
  Serious: Yes (Other)
  Sender: FDA-Public Use
  Company Number: IT-BRISTOL-MYERS SQUIBB COMPANY-12945416

PATIENT
  Age: 64 Year
  Sex: Male

DRUGS (7)
  1. CYCLOPHOSPHAMIDE [Suspect]
     Indication: BREAST CANCER
     Dosage: ADMINSITERED ON DAY 1 AND DAY 8
     Dates: start: 20010101
  2. METHOTREXATE [Suspect]
     Indication: BREAST CANCER
     Dosage: ADMINISTERED DAY 1 AND DAY 8
     Dates: start: 20010101
  3. FLUOROURACIL [Suspect]
     Indication: BREAST CANCER
     Dosage: ADMINISTERED DAY 1 AND DAY 8
     Dates: start: 20010101
  4. HERBAL MIXTURE [Suspect]
     Indication: BREAST CANCER
  5. RADIATION THERAPY [Concomitant]
     Indication: BREAST CANCER
     Dosage: 50 GY, 200 CGY/DAY, 5 DAYS PER WEEK
     Dates: end: 20020101
  6. TAMOXIFEN CITRATE [Concomitant]
     Indication: BREAST CANCER
     Route: 048
     Dates: start: 20020101
  7. VITAMIN A [Concomitant]

REACTIONS (1)
  - DEAFNESS NEUROSENSORY [None]
